FAERS Safety Report 4316908-1 (Version None)
Quarter: 2004Q1

REPORT INFORMATION
  Report Type: 
  Country: None (occurrence: None)
  Receive Date: 20040309
  Receipt Date: 20040106
  Transmission Date: 20041129
  Serious: Yes (Other)
  Sender: FDA-Public Use
  Company Number: A03200302561

PATIENT
  Age: 49 Year
  Sex: Female
  Weight: 49.8957 kg

DRUGS (4)
  1. ELOXATIN [Suspect]
     Indication: COLORECTAL CANCER
     Dosage: 120 MG Q2W - INTRAVENOUS NOS
     Route: 042
     Dates: start: 20031021, end: 20031021
  2. FLUOROURACIL [Concomitant]
  3. LEUCOVORIN [Concomitant]
  4. DOLASETRON MESILATE [Concomitant]

REACTIONS (4)
  - ERYTHEMA [None]
  - OXYGEN SATURATION DECREASED [None]
  - RASH PRURITIC [None]
  - WHEEZING [None]
